FAERS Safety Report 11839982 (Version 3)
Quarter: 2016Q1

REPORT INFORMATION
  Report Type: Spontaneous
  Country: JP (occurrence: JP)
  Receive Date: 20151216
  Receipt Date: 20160115
  Transmission Date: 20160525
  Serious: Yes (Hospitalization, Other)
  Sender: FDA-Public Use
  Company Number: JP-ASTELLAS-2015JP022982

PATIENT
  Age: 43 Year
  Sex: Female
  Weight: 60 kg

DRUGS (52)
  1. PREDNISOLONE. [Suspect]
     Active Substance: PREDNISOLONE
     Route: 048
     Dates: end: 1999
  2. PREDNISOLONE. [Suspect]
     Active Substance: PREDNISOLONE
     Route: 048
     Dates: start: 2003
  3. PREDNISOLONE. [Suspect]
     Active Substance: PREDNISOLONE
     Route: 048
     Dates: start: 20101111, end: 20110209
  4. PREDNISOLONE. [Suspect]
     Active Substance: PREDNISOLONE
     Route: 048
     Dates: start: 20110210, end: 20110413
  5. PREDNISOLONE. [Suspect]
     Active Substance: PREDNISOLONE
     Route: 048
     Dates: start: 20110414, end: 2011
  6. PREDNISOLONE. [Suspect]
     Active Substance: PREDNISOLONE
     Route: 048
     Dates: start: 20140410, end: 20140813
  7. PREDNISOLONE. [Suspect]
     Active Substance: PREDNISOLONE
     Route: 048
     Dates: start: 20150219, end: 20151102
  8. PREDNISOLONE. [Suspect]
     Active Substance: PREDNISOLONE
     Route: 048
     Dates: start: 20151103
  9. FAMOTIDINE. [Concomitant]
     Active Substance: FAMOTIDINE
     Indication: GASTRIC ULCER
     Route: 048
  10. CICLOSPORIN [Concomitant]
     Active Substance: CYCLOSPORINE
     Route: 065
     Dates: start: 2005, end: 2005
  11. PREDNISOLONE. [Suspect]
     Active Substance: PREDNISOLONE
     Route: 048
     Dates: end: 2003
  12. PREDNISOLONE. [Suspect]
     Active Substance: PREDNISOLONE
     Route: 048
     Dates: start: 20111006, end: 20111221
  13. PREDNISOLONE. [Suspect]
     Active Substance: PREDNISOLONE
     Route: 048
     Dates: start: 20111222, end: 20120314
  14. BAYASPIRIN [Concomitant]
     Active Substance: ASPIRIN
     Indication: ANTIPHOSPHOLIPID SYNDROME
     Route: 048
  15. EURODIN                            /00401202/ [Concomitant]
     Active Substance: DIHYDROERGOCRISTINE MESYLATE
     Indication: INSOMNIA
     Route: 048
  16. CICLOSPORIN [Concomitant]
     Active Substance: CYCLOSPORINE
     Route: 065
     Dates: start: 20100520
  17. PREDNISOLONE. [Suspect]
     Active Substance: PREDNISOLONE
     Route: 048
     Dates: start: 20130822, end: 20131218
  18. METHYCOBAL [Concomitant]
     Active Substance: METHYLCOBALAMIN
     Indication: NEURALGIA
     Route: 048
  19. MEDROL [Concomitant]
     Active Substance: METHYLPREDNISOLONE
     Indication: SYSTEMIC LUPUS ERYTHEMATOSUS
     Route: 065
  20. CICLOSPORIN [Concomitant]
     Active Substance: CYCLOSPORINE
     Indication: PRODUCT USED FOR UNKNOWN INDICATION
     Route: 065
     Dates: start: 2003, end: 2003
  21. GLAKAY [Concomitant]
     Active Substance: MENATETRENONE
     Indication: OSTEOPOROSIS
     Route: 048
  22. MEROPEN                            /01250501/ [Concomitant]
     Active Substance: MEROPENEM
     Indication: HAEMATOMA
     Dosage: UNK UNK, UNKNOWN FREQ.
     Route: 065
     Dates: start: 201007
  23. PREDNISOLONE. [Suspect]
     Active Substance: PREDNISOLONE
     Route: 048
     Dates: end: 2009
  24. PREDNISOLONE. [Suspect]
     Active Substance: PREDNISOLONE
     Route: 048
     Dates: start: 2009
  25. PREDNISOLONE. [Suspect]
     Active Substance: PREDNISOLONE
     Route: 048
     Dates: start: 20100520, end: 20100818
  26. PREDNISOLONE. [Suspect]
     Active Substance: PREDNISOLONE
     Route: 048
     Dates: start: 20120315, end: 20120606
  27. PREDNISOLONE. [Suspect]
     Active Substance: PREDNISOLONE
     Route: 048
     Dates: start: 20120607, end: 20121114
  28. PREDNISOLONE. [Suspect]
     Active Substance: PREDNISOLONE
     Route: 048
     Dates: start: 20121115, end: 20121212
  29. LYRICA [Concomitant]
     Active Substance: PREGABALIN
     Indication: NEURALGIA
     Dosage: 150 MG, TWICE DAILY, AFTER BREAKFAST AND DINNER
     Route: 048
  30. SHAKUYAKUKANZOTO [Concomitant]
     Active Substance: HERBALS
     Indication: NEURALGIA
     Dosage: 2.5 MG, THRICE DAILY, AFTER BREAKFAST, LUNCH AND DINNER
     Route: 048
  31. METHYLPREDNISOLONE. [Concomitant]
     Active Substance: METHYLPREDNISOLONE
     Indication: STEROID THERAPY
     Route: 065
     Dates: start: 20100816, end: 20100818
  32. PREDNISOLONE. [Suspect]
     Active Substance: PREDNISOLONE
     Indication: LUPUS NEPHRITIS
     Dosage: UNK UNK, UNKNOWN FREQ.
     Route: 048
  33. PREDNISOLONE. [Suspect]
     Active Substance: PREDNISOLONE
     Route: 048
     Dates: start: 2005
  34. PREDNISOLONE. [Suspect]
     Active Substance: PREDNISOLONE
     Route: 048
     Dates: start: 2011, end: 20111005
  35. PREDNISOLONE. [Suspect]
     Active Substance: PREDNISOLONE
     Route: 048
     Dates: start: 20130404, end: 20130821
  36. EVISTA [Concomitant]
     Active Substance: RALOXIFENE HYDROCHLORIDE
     Indication: OSTEOPOROSIS
     Dosage: 60 MG, ONCE DAILY, AFTER BREAKFAST
     Route: 048
  37. MYSLEE [Concomitant]
     Active Substance: ZOLPIDEM TARTRATE
     Indication: INSOMNIA
     Route: 048
  38. NEUROVITAN                         /00176001/ [Concomitant]
     Indication: NEURALGIA
     Route: 048
  39. MEDROL [Concomitant]
     Active Substance: METHYLPREDNISOLONE
     Indication: LUPUS NEPHRITIS
  40. CICLOSPORIN [Concomitant]
     Active Substance: CYCLOSPORINE
     Route: 065
     Dates: start: 200505
  41. PREDNISOLONE. [Suspect]
     Active Substance: PREDNISOLONE
     Route: 048
     Dates: start: 1999
  42. PREDNISOLONE. [Suspect]
     Active Substance: PREDNISOLONE
     Route: 048
     Dates: start: 20101014, end: 20101110
  43. PREDNISOLONE. [Suspect]
     Active Substance: PREDNISOLONE
     Route: 048
     Dates: start: 20131219, end: 20140409
  44. PREDNISOLONE. [Suspect]
     Active Substance: PREDNISOLONE
     Route: 048
     Dates: start: 20140814, end: 20150218
  45. CRAVIT [Concomitant]
     Active Substance: LEVOFLOXACIN
     Indication: PYELONEPHRITIS
     Dosage: UNK UNK, UNKNOWN FREQ.
     Route: 048
     Dates: start: 20120507
  46. PROGRAF [Suspect]
     Active Substance: TACROLIMUS\TACROLIMUS ANHYDROUS
     Indication: LUPUS NEPHRITIS
     Dosage: 3 MG, ONCE DAILY, AFTER DINNER
     Route: 048
     Dates: start: 20100819
  47. PREDNISOLONE. [Suspect]
     Active Substance: PREDNISOLONE
     Route: 048
     Dates: end: 2005
  48. PREDNISOLONE. [Suspect]
     Active Substance: PREDNISOLONE
     Route: 048
     Dates: start: 20100819, end: 20100912
  49. PREDNISOLONE. [Suspect]
     Active Substance: PREDNISOLONE
     Route: 048
     Dates: start: 20100913, end: 20101013
  50. PREDNISOLONE. [Suspect]
     Active Substance: PREDNISOLONE
     Route: 048
     Dates: start: 20121213, end: 20130403
  51. BLOPRESS [Concomitant]
     Active Substance: CANDESARTAN CILEXETIL
     Indication: HYPERTENSION
     Route: 048
  52. CICLOSPORIN [Concomitant]
     Active Substance: CYCLOSPORINE
     Route: 065
     Dates: end: 2009

REACTIONS (3)
  - Blood beta-D-glucan increased [Unknown]
  - Retroperitoneal fibrosis [Recovered/Resolved]
  - Myopathy [Recovering/Resolving]

NARRATIVE: CASE EVENT DATE: 20151021
